FAERS Safety Report 8137336-7 (Version None)
Quarter: 2012Q1

REPORT INFORMATION
  Report Type: 
  Country: None (occurrence: None)
  Receive Date: 20120103
  Receipt Date: 20111028
  Transmission Date: 20120608
  Serious: No
  Sender: FDA-Public Use
  Company Number: AE-2011-001560

PATIENT
  Age: 54 Year
  Sex: Female
  Weight: 136.0791 kg

DRUGS (8)
  1. BUMEX [Concomitant]
  2. PROCRIT [Concomitant]
  3. INCIVEK [Suspect]
     Dosage: 2250 MG (750 MG, 3 IN 1 D)
     Dates: start: 20110912
  4. LORTAB [Concomitant]
  5. DIOVAN [Concomitant]
  6. METOPROLOL TARTRATE [Concomitant]
  7. RIBAVIRIN [Concomitant]
  8. PEG-INTRON [Concomitant]

REACTIONS (2)
  - ANORECTAL DISCOMFORT [None]
  - DIARRHOEA [None]
